FAERS Safety Report 12238327 (Version 2)
Quarter: 2016Q2

REPORT INFORMATION
  Report Type: Spontaneous
  Country: GB (occurrence: GB)
  Receive Date: 20160405
  Receipt Date: 20160607
  Transmission Date: 20160815
  Serious: No
  Sender: FDA-Public Use
  Company Number: GB-009507513-1603GBR011867

PATIENT
  Age: 30 Year
  Sex: Female

DRUGS (1)
  1. ELOCON [Suspect]
     Active Substance: MOMETASONE FUROATE
     Indication: NASAL CONGESTION
     Dosage: THROUGH BOTH NOSTRILS
     Route: 045
     Dates: start: 20160323

REACTIONS (3)
  - Product dosage form confusion [Unknown]
  - Product use issue [Unknown]
  - Incorrect route of drug administration [Unknown]

NARRATIVE: CASE EVENT DATE: 20160323
